FAERS Safety Report 5549892-3 (Version None)
Quarter: 2007Q4

REPORT INFORMATION
  Report Type: 
  Country: None (occurrence: None)
  Receive Date: 20071129
  Receipt Date: 20071004
  Transmission Date: 20080405
  Serious: Yes (Other)
  Sender: FDA-Public Use
  Company Number: PHEH2007US10050

PATIENT
  Age: 84 Year
  Sex: Male
  Weight: 70.7 kg

DRUGS (5)
  1. LAMISIL [Suspect]
     Indication: ONYCHOMYCOSIS
     Dosage: 250 MG, QD, ORAL
     Route: 048
     Dates: start: 20070503, end: 20070716
  2. ASPIRIN [Concomitant]
  3. LESCOL [Concomitant]
  4. PREVACID [Concomitant]
  5. LISINOPRIL [Concomitant]

REACTIONS (7)
  - AGEUSIA [None]
  - DECREASED APPETITE [None]
  - DYSGEUSIA [None]
  - DYSPHAGIA [None]
  - DYSPHONIA [None]
  - FATIGUE [None]
  - WEIGHT DECREASED [None]
